FAERS Safety Report 18709911 (Version 3)
Quarter: 2021Q1

REPORT INFORMATION
  Report Type: Spontaneous
  Country: US (occurrence: US)
  Receive Date: 20210106
  Receipt Date: 20210128
  Transmission Date: 20210419
  Serious: Yes (Hospitalization)
  Sender: FDA-Public Use
  Company Number: US-BIOMARINAP-US-2020-134165

PATIENT
  Sex: Female
  Weight: 22 kg

DRUGS (1)
  1. NAGLAZYME [Suspect]
     Active Substance: GALSULFASE
     Indication: MUCOPOLYSACCHARIDOSIS VI
     Dosage: 22 MILLIGRAM, QW
     Route: 042
     Dates: start: 20160613

REACTIONS (3)
  - Fall [Unknown]
  - Head injury [Unknown]
  - Dislocation of vertebra [Unknown]
